FAERS Safety Report 5918892-3 (Version None)
Quarter: 2008Q4

REPORT INFORMATION
  Report Type: 
  Country: None (occurrence: None)
  Receive Date: 20081015
  Receipt Date: 20081003
  Transmission Date: 20090506
  Serious: Yes (Other)
  Sender: FDA-Public Use
  Company Number: US-AMGEN-US311334

PATIENT
  Sex: Female

DRUGS (1)
  1. ENBREL [Suspect]
     Indication: JUVENILE ARTHRITIS
     Route: 058
     Dates: start: 20030601

REACTIONS (6)
  - CONVULSION [None]
  - FATIGUE [None]
  - JUVENILE ARTHRITIS [None]
  - POSTURAL ORTHOSTATIC TACHYCARDIA SYNDROME [None]
  - VITAMIN D DEFICIENCY [None]
  - WEIGHT INCREASED [None]
